FAERS Safety Report 11576277 (Version 1)
Quarter: 2015Q3

REPORT INFORMATION
  Report Type: Spontaneous
  Country: US (occurrence: US)
  Receive Date: 20150916
  Receipt Date: 20150916
  Transmission Date: 20151125
  Serious: No
  Sender: FDA-Public Use
  Company Number: US-ELI_LILLY_AND_COMPANY-US201305004103

PATIENT
  Sex: Female
  Weight: 54.42 kg

DRUGS (2)
  1. HUMALOG [Suspect]
     Active Substance: INSULIN LISPRO
     Route: 058
  2. TRAMADOL. [Concomitant]
     Active Substance: TRAMADOL
     Indication: MUSCULOSKELETAL PAIN
     Dosage: UNK, UNKNOWN

REACTIONS (3)
  - Nausea [Unknown]
  - Blood glucose increased [Unknown]
  - Musculoskeletal pain [Unknown]
